FAERS Safety Report 6212853-5 (Version None)
Quarter: 2009Q2

REPORT INFORMATION
  Report Type: 
  Country: None (occurrence: None)
  Receive Date: 20090603
  Receipt Date: 20090522
  Transmission Date: 20091009
  Serious: Yes (Other)
  Sender: FDA-Public Use
  Company Number: US-WYE-H09452909

PATIENT
  Age: 52 Year
  Sex: Male

DRUGS (2)
  1. PRISTIQ [Suspect]
     Indication: DEPRESSION
     Route: 048
     Dates: start: 20090401, end: 20090501
  2. PRISTIQ [Suspect]
     Indication: ANXIETY

REACTIONS (1)
  - VENTRICULAR TACHYCARDIA [None]
